FAERS Safety Report 6097988-2 (Version None)
Quarter: 2009Q1

REPORT INFORMATION
  Report Type: 
  Country: None (occurrence: None)
  Receive Date: 20090227
  Receipt Date: 20090218
  Transmission Date: 20090719
  Serious: Yes (Hospitalization)
  Sender: FDA-Public Use
  Company Number: DE-ABBOTT-08P-062-0440676-00

PATIENT
  Sex: Female

DRUGS (4)
  1. HUMIRA [Suspect]
     Indication: RHEUMATOID ARTHRITIS
     Route: 058
     Dates: start: 20071101, end: 20080101
  2. METHOTREXATE [Concomitant]
     Indication: RHEUMATOID ARTHRITIS
  3. PREDNISOLONE [Concomitant]
     Indication: RHEUMATOID ARTHRITIS
     Dosage: 5 TO 20 MG PER DAY
     Route: 048
  4. KETOPROFENE [Concomitant]
     Indication: PAIN
     Route: 048

REACTIONS (1)
  - ANOGENITAL WARTS [None]
